FAERS Safety Report 5840659-5 (Version None)
Quarter: 2008Q3

REPORT INFORMATION
  Report Type: 
  Country: None (occurrence: None)
  Receive Date: 20080811
  Receipt Date: 20080804
  Transmission Date: 20090109
  Serious: Yes (Congenital Anomaly, Other)
  Sender: FDA-Public Use
  Company Number: PHBS2008GB05299

PATIENT
  Sex: Male

DRUGS (3)
  1. CARBAMAZEPINE [Suspect]
     Dosage: MATERNAL DOSE: 1200 MG/DAY
     Route: 064
  2. TOPIRAMATE [Suspect]
     Dosage: MATERNAL DOSE: 500 MG/DAY
     Route: 064
  3. CLOBAZAM [Suspect]
     Dosage: MATERNAL DOSE: 10 MG/DAY
     Route: 064

REACTIONS (2)
  - DRUG EXPOSURE DURING PREGNANCY [None]
  - HIP DYSPLASIA [None]
